FAERS Safety Report 9513618 (Version 2)
Quarter: 2013Q3

REPORT INFORMATION
  Report Type: Spontaneous
  Country: JP (occurrence: JP)
  Receive Date: 20130910
  Receipt Date: 20130910
  Transmission Date: 20140515
  Serious: Yes (Life-Threatening)
  Sender: FDA-Public Use
  Company Number: JP-GLAXOSMITHKLINE-B0490011A

PATIENT
  Age: 41 Year
  Sex: Female
  Weight: 33 kg

DRUGS (8)
  1. PAXIL [Suspect]
     Indication: EATING DISORDER
     Dosage: 40MG PER DAY
     Route: 048
     Dates: end: 20070812
  2. PAXIL [Suspect]
     Indication: PRODUCT USED FOR UNKNOWN INDICATION
     Dosage: 5240MG PER DAY
     Route: 048
  3. DEPAS [Concomitant]
     Indication: EATING DISORDER
     Dosage: 1MG THREE TIMES PER DAY
     Route: 048
     Dates: end: 20070812
  4. DOGMATYL [Concomitant]
     Indication: EATING DISORDER
     Dosage: 50MG PER DAY
     Route: 048
     Dates: end: 20070812
  5. CONSTAN [Concomitant]
     Indication: EATING DISORDER
     Dosage: .4MG PER DAY
     Route: 048
     Dates: end: 20070812
  6. REMODELLIN [Concomitant]
     Indication: OSTEOPOROSIS
     Dosage: 1MCG PER DAY
     Route: 048
     Dates: end: 20070812
  7. GLAKAY [Concomitant]
     Indication: OSTEOPOROSIS
     Dosage: 15MG THREE TIMES PER DAY
     Route: 048
     Dates: end: 20070812
  8. EVISTA [Concomitant]
     Indication: OSTEOPOROSIS
     Dosage: 60MG PER DAY
     Route: 048
     Dates: end: 20070812

REACTIONS (15)
  - Suicide attempt [Unknown]
  - Ventricular tachycardia [Recovered/Resolved]
  - Electrocardiogram QT prolonged [Recovered/Resolved]
  - Serotonin syndrome [Recovered/Resolved]
  - Central nervous system lesion [Recovered/Resolved]
  - Altered state of consciousness [Unknown]
  - Torsade de pointes [Unknown]
  - Opsoclonus myoclonus [Unknown]
  - Mydriasis [Unknown]
  - Hyperreflexia [Unknown]
  - Restlessness [Unknown]
  - Pyrexia [Unknown]
  - Myoclonus [Unknown]
  - Agitation [Unknown]
  - Intentional overdose [Unknown]
